FAERS Safety Report 6543196-8 (Version None)
Quarter: 2010Q1

REPORT INFORMATION
  Report Type: 
  Country: None (occurrence: None)
  Receive Date: 20100106
  Receipt Date: 20091223
  Transmission Date: 20100710
  Serious: No
  Sender: FDA-Public Use
  Company Number: 2009-00904

PATIENT
  Age: 51 Year
  Sex: Female
  Weight: 90.7194 kg

DRUGS (2)
  1. COLD REMEDY ORAL MIST [Suspect]
     Dosage: ONCE - ONE SPRAY
     Dates: start: 20091223, end: 20091223
  2. TAPAZOLE [Concomitant]

REACTIONS (1)
  - AGEUSIA [None]
